FAERS Safety Report 15065142 (Version 9)
Quarter: 2020Q4

REPORT INFORMATION
  Report Type: Other
  Country: IT (occurrence: IT)
  Receive Date: 20180626
  Receipt Date: 20201117
  Transmission Date: 20210113
  Serious: Yes (Hospitalization, Other)
  Sender: FDA-Public Use
  Company Number: IT-ROCHE-2026263

PATIENT
  Age: 67 Year
  Sex: Female
  Weight: 77 kg

DRUGS (16)
  1. PERTUZUMAB. [Suspect]
     Active Substance: PERTUZUMAB
     Indication: BREAST CANCER METASTATIC
     Dosage: MOST RECENT DOSE PRIOR TO THE EVENT: 05/OCT/2018
     Route: 042
     Dates: start: 20170818
  2. KCL [Concomitant]
     Active Substance: POTASSIUM CHLORIDE
     Dosage: ONGOING = CHECKED
     Dates: start: 20180427
  3. DELORAZEPAM [Concomitant]
     Active Substance: DELORAZEPAM
     Dates: start: 20171113
  4. PRITOR PLUS [Concomitant]
     Active Substance: TELMISARTAN
     Dates: start: 20100310
  5. LORAZEPAM. [Concomitant]
     Active Substance: LORAZEPAM
     Indication: MAJOR DEPRESSION
     Dates: start: 20190110
  6. DEPAKIN [Concomitant]
     Active Substance: VALPROATE SODIUM
     Dosage: ONGOING = CHECKED
     Dates: start: 20181108
  7. CETIRIZINA [Concomitant]
     Active Substance: CETIRIZINE HYDROCHLORIDE
     Indication: PRURITUS
     Dosage: ONGOING = CHECKED
     Dates: start: 20181002
  8. TRASTUZUMAB. [Suspect]
     Active Substance: TRASTUZUMAB
     Indication: BREAST CANCER METASTATIC
     Route: 042
     Dates: start: 20170726, end: 20170726
  9. DELORAZEPAM [Concomitant]
     Active Substance: DELORAZEPAM
     Indication: MAJOR DEPRESSION
     Dates: start: 20131218, end: 20171113
  10. DOCETAXEL. [Suspect]
     Active Substance: DOCETAXEL
     Indication: BREAST CANCER METASTATIC
     Dosage: ON 06/SEP/2017, SHE RECEIVED MOST RECENT DOSE OF DOCETAXEL.
     Route: 042
     Dates: start: 20170726
  11. LOPERAMIDE [Concomitant]
     Active Substance: LOPERAMIDE
     Indication: DIARRHOEA
     Dosage: ONGOING = CHECKED
     Dates: start: 20180126
  12. LETROZOLE. [Suspect]
     Active Substance: LETROZOLE
     Indication: BREAST CANCER METASTATIC
     Route: 048
     Dates: start: 20180209
  13. LOPERAMIDE [Concomitant]
     Active Substance: LOPERAMIDE
     Dosage: ONGOING = CHECKED
     Dates: start: 20170906
  14. CHLORPHENIRAMINE. [Concomitant]
     Active Substance: CHLORPHENIRAMINE
     Dosage: ONGOING = CHECKED
     Dates: start: 20170726
  15. UREA. [Concomitant]
     Active Substance: UREA
     Indication: PRURITUS
     Dosage: ONGOING = NOT CHECKED
     Dates: start: 20180926, end: 20190110
  16. EUTIROX [Concomitant]
     Active Substance: LEVOTHYROXINE SODIUM

REACTIONS (2)
  - Major depression [Not Recovered/Not Resolved]
  - Major depression [Recovered/Resolved]

NARRATIVE: CASE EVENT DATE: 20171113
